FAERS Safety Report 7360411-1 (Version None)
Quarter: 2011Q1

REPORT INFORMATION
  Report Type: 
  Country: None (occurrence: None)
  Receive Date: 20110318
  Receipt Date: 20100817
  Transmission Date: 20110831
  Serious: Yes (Hospitalization, Other)
  Sender: FDA-Public Use
  Company Number: US-BAYER-201011620NA

PATIENT
  Sex: Female
  Weight: 67 kg

DRUGS (17)
  1. BENZOYL PEROXIDE [Concomitant]
     Indication: ACNE
     Route: 065
     Dates: start: 20080101
  2. ANTIBIOTICS [Concomitant]
  3. CLOTRIMAZOLE W/BETAMETHASONE DIPROPIONAT [Concomitant]
     Dosage: UNK UNK, BID
     Route: 067
     Dates: start: 20090722
  4. ACETAMINOPHEN [Concomitant]
     Dosage: UNK
     Route: 048
     Dates: start: 20090805
  5. ASCORBIC ACID [Concomitant]
  6. CLOBETASOL PROPIONATE [Concomitant]
  7. ALAVERT [Concomitant]
     Indication: MULTIPLE ALLERGIES
     Route: 065
     Dates: start: 20060601
  8. FLUCONAZOLE [Concomitant]
     Dosage: 150 UNK, UNK
     Route: 048
     Dates: start: 20090722
  9. LOPROX [Concomitant]
     Indication: SKIN DISORDER
     Route: 065
     Dates: start: 20060101
  10. YASMIN [Suspect]
     Route: 048
     Dates: start: 20050301, end: 20071115
  11. YASMIN [Suspect]
     Dosage: UNK UNK, QD
     Route: 048
     Dates: start: 20090601, end: 20090815
  12. TESTOSTERONE [Concomitant]
     Indication: BLOOD TESTOSTERONE DECREASED
     Dosage: UNK
     Dates: start: 20081201, end: 20090401
  13. NYSTATIN [Concomitant]
     Dosage: UNK UNK, QID
     Route: 048
     Dates: start: 20090625
  14. CLEOCIN [Concomitant]
     Dosage: UNK
     Route: 067
     Dates: start: 20090722
  15. HYDROCODONE [Concomitant]
     Dosage: UNK
     Route: 048
     Dates: start: 20090805
  16. MOTRIM [Concomitant]
  17. XANAX [Concomitant]

REACTIONS (4)
  - DEEP VEIN THROMBOSIS [None]
  - PAIN [None]
  - EMOTIONAL DISTRESS [None]
  - PULMONARY EMBOLISM [None]
